FAERS Safety Report 21552040 (Version 2)
Quarter: 2022Q4

REPORT INFORMATION
  Report Type: Report from Study
  Country: PR (occurrence: PR)
  Receive Date: 20221104
  Receipt Date: 20221121
  Transmission Date: 20230113
  Serious: No
  Sender: FDA-Public Use
  Company Number: PR-ABBVIE-4188170

PATIENT
  Sex: Female
  Weight: 103.41 kg

DRUGS (1)
  1. VENCLEXTA [Suspect]
     Active Substance: VENETOCLAX
     Indication: Chronic lymphocytic leukaemia
     Route: 048
     Dates: start: 20221026, end: 20221101

REACTIONS (5)
  - Vomiting [Unknown]
  - Pain in extremity [Unknown]
  - Gait disturbance [Unknown]
  - Asthenia [Unknown]
  - Muscle spasms [Unknown]
